FAERS Safety Report 5450238-X (Version None)
Quarter: 2007Q3

REPORT INFORMATION
  Report Type: 
  Country: None (occurrence: None)
  Receive Date: 20070912
  Receipt Date: 20070905
  Transmission Date: 20080115
  Serious: Yes (Hospitalization)
  Sender: FDA-Public Use
  Company Number: US-ROCHE-515454

PATIENT
  Age: 64 Year
  Sex: Female

DRUGS (20)
  1. BONIVA [Suspect]
     Indication: OSTEOPOROSIS
     Route: 065
     Dates: start: 20050901
  2. BETASERON [Concomitant]
  3. MIRTAZAPINE [Concomitant]
  4. ONDANSETRON [Concomitant]
  5. PROTONIX [Concomitant]
  6. CIPROFLOXACIN [Concomitant]
  7. UNSPECIFIED MEDICATION [Concomitant]
     Dosage: REPORTED AS ANOX-CLAV
  8. OXYBUTYNIN CHLORIDE [Concomitant]
  9. ASPIRIN [Concomitant]
  10. SIMVASTIN [Concomitant]
  11. UNSPECIFIED MEDICATION [Concomitant]
     Dosage: REPORTED AS CITALONPRIN HBR
  12. NAPROXEN [Concomitant]
  13. AMANTADINE HCL [Concomitant]
  14. CALCIUM [Concomitant]
  15. LEXAPRO [Concomitant]
  16. BACTOFEN [Concomitant]
  17. UNSPECIFIED MEDICATION [Concomitant]
     Dosage: REPORTED AS MULTIVITAMINS
  18. METAMUCIL [Concomitant]
  19. MIRALAX [Concomitant]
  20. UNSPECIFIED MEDICATION [Concomitant]
     Dosage: REPORTED AS TOPICAL OINTMENTS FOR NON HEALING WOUNDS

REACTIONS (1)
  - DEPRESSION [None]
